FAERS Safety Report 25204348 (Version 1)
Quarter: 2025Q2

REPORT INFORMATION
  Report Type: Report from Study
  Country: US (occurrence: US)
  Receive Date: 20250416
  Receipt Date: 20250416
  Transmission Date: 20250716
  Serious: Yes (Other)
  Sender: ESTEVE
  Company Number: US-Esteve Pharmaceuticals SA-2175014

PATIENT
  Age: 44 Year
  Sex: Female

DRUGS (17)
  1. LYSODREN [Suspect]
     Active Substance: MITOTANE
     Indication: Adrenal gland cancer
     Dates: start: 20210814
  2. ATIVAN [Concomitant]
     Active Substance: LORAZEPAM
  3. LYSODREN [Suspect]
     Active Substance: MITOTANE
  4. LYSODREN [Suspect]
     Active Substance: MITOTANE
  5. LYSODREN [Suspect]
     Active Substance: MITOTANE
     Dates: start: 20210814
  6. LYSODREN [Suspect]
     Active Substance: MITOTANE
     Dates: start: 20210814
  7. TRAZODONE [Concomitant]
     Active Substance: TRAZODONE HYDROCHLORIDE
  8. ADDERALL XR [Concomitant]
     Active Substance: AMPHETAMINE ASPARTATE\AMPHETAMINE SULFATE\DEXTROAMPHETAMINE SACCHARATE\DEXTROAMPHETAMINE SULFATE
  9. ADDERALL XR [Concomitant]
     Active Substance: AMPHETAMINE ASPARTATE\AMPHETAMINE SULFATE\DEXTROAMPHETAMINE SACCHARATE\DEXTROAMPHETAMINE SULFATE
  10. HYDROCORTISONE [Concomitant]
     Active Substance: HYDROCORTISONE
  11. HYDROCODONE [Concomitant]
     Active Substance: HYDROCODONE
  12. PREDNISONE [Concomitant]
     Active Substance: PREDNISONE
  13. EPINEPHRINE INJ 0.3MG (EPINEPHRINE HYDROCHLORIDE) [Concomitant]
  14. CLOBETASOL SOL 0.05% (CLOBETASOL PROPIONATE) [Concomitant]
  15. CICLOPIROX SHA 1% (CICLOPIROX OLAMINE) [Concomitant]
  16. ZOLOFT [Concomitant]
     Active Substance: SERTRALINE HYDROCHLORIDE
  17. MONTELUKAST SODIUM [Concomitant]
     Active Substance: MONTELUKAST SODIUM

REACTIONS (6)
  - Hypothyroidism [Unknown]
  - Product dose omission issue [Unknown]
  - Nausea [Not Recovered/Not Resolved]
  - Hypercholesterolaemia [Unknown]
  - Fatigue [Not Recovered/Not Resolved]
  - Diarrhoea [Recovered/Resolved]

NARRATIVE: CASE EVENT DATE: 20220103
